FAERS Safety Report 22242173 (Version 2)
Quarter: 2023Q2

REPORT INFORMATION
  Report Type: Spontaneous
  Country: US (occurrence: None)
  Receive Date: 20230422
  Receipt Date: 20230607
  Transmission Date: 20230722
  Serious: No
  Sender: FDA-Public Use
  Company Number: 2023A078340

PATIENT
  Sex: Female
  Weight: 90.7 kg

DRUGS (2)
  1. FASENRA [Suspect]
     Active Substance: BENRALIZUMAB
     Indication: Asthma
     Dosage: 30MG/ML EVERY FOUR WEEKS
     Route: 058
     Dates: start: 202303
  2. FASENRA [Suspect]
     Active Substance: BENRALIZUMAB
     Indication: Asthma
     Dosage: 30.0MG UNKNOWN
     Route: 058
     Dates: end: 2019

REACTIONS (6)
  - Dyspnoea [Unknown]
  - Cough [Unknown]
  - Lung disorder [Unknown]
  - Oedema [Unknown]
  - Mass [Unknown]
  - Device leakage [Unknown]
